FAERS Safety Report 12309414 (Version 1)
Quarter: 2016Q2

REPORT INFORMATION
  Report Type: Spontaneous
  Country: US (occurrence: None)
  Receive Date: 20160426
  Receipt Date: 20160426
  Transmission Date: 20160815
  Serious: Yes (Disabling)
  Sender: FDA-Public Use
  Company Number: None

PATIENT
  Age: 59 Year
  Sex: Male
  Weight: 136.08 kg

DRUGS (5)
  1. MULTI VITIMAS [Concomitant]
  2. METFORMINE [Concomitant]
     Active Substance: METFORMIN HYDROCHLORIDE
  3. VENLAFAXINE [Suspect]
     Active Substance: VENLAFAXINE HYDROCHLORIDE
     Indication: DEPRESSION
     Dates: start: 20130401, end: 20160301
  4. HIGH COLOTRAL [Concomitant]
  5. BLOOD PRESURE [Concomitant]

REACTIONS (8)
  - Libido decreased [None]
  - Muscle spasms [None]
  - Diarrhoea [None]
  - Restlessness [None]
  - Confusional state [None]
  - Urinary incontinence [None]
  - Blood pressure abnormal [None]
  - Vomiting [None]

NARRATIVE: CASE EVENT DATE: 20160104
